FAERS Safety Report 23460911 (Version 1)
Quarter: 2024Q1

REPORT INFORMATION
  Report Type: Spontaneous
  Country: US (occurrence: None)
  Receive Date: 20240130
  Receipt Date: 20240130
  Transmission Date: 20240410
  Serious: Yes (Other)
  Sender: FDA-Public Use
  Company Number: None

PATIENT
  Age: 33 Year
  Sex: Female

DRUGS (1)
  1. EPIDIOLEX [Suspect]
     Active Substance: CANNABIDIOL
     Indication: Epilepsy
     Dosage: 100MG BID ORAL?
     Route: 048
     Dates: start: 20220324

REACTIONS (2)
  - Seizure [None]
  - Urinary tract infection [None]

NARRATIVE: CASE EVENT DATE: 20240130
